FAERS Safety Report 6258354-X (Version None)
Quarter: 2009Q3

REPORT INFORMATION
  Report Type: 
  Country: None (occurrence: None)
  Receive Date: 20090707
  Receipt Date: 20090629
  Transmission Date: 20100115
  Serious: Yes (Other)
  Sender: FDA-Public Use
  Company Number: US-ELI_LILLY_AND_COMPANY-US200903003433

PATIENT
  Sex: Female

DRUGS (7)
  1. FORTEO [Suspect]
     Indication: OSTEOPOROSIS
     Dosage: UNK, UNK
     Dates: start: 20090211, end: 20090401
  2. ASPIRIN [Concomitant]
     Dosage: 81 MG, DAILY (1/D)
  3. CALCIUM W/VITAMIN D NOS [Concomitant]
     Dosage: 600 MG, 3/D
  4. DICLOFENAC SODIUM [Concomitant]
     Dosage: 75 MG, DAILY (1/D)
  5. LOVASTATIN [Concomitant]
     Dosage: 20 MG, EACH EVENING
  6. MULTI-VITAMIN [Concomitant]
  7. NEXIUM [Concomitant]
     Dosage: 40 MG, DAILY (1/D)

REACTIONS (2)
  - HYPERPARATHYROIDISM PRIMARY [None]
  - NASOPHARYNGITIS [None]
